FAERS Safety Report 7107384-4 (Version None)
Quarter: 2010Q4

REPORT INFORMATION
  Report Type: 
  Country: None (occurrence: None)
  Receive Date: 20101112
  Receipt Date: 20101112
  Transmission Date: 20110411
  Serious: Yes (Hospitalization)
  Sender: FDA-Public Use
  Company Number: None

PATIENT
  Sex: Male
  Weight: 63.6 kg

DRUGS (2)
  1. CISPLATIN [Suspect]
     Dosage: 129 MG
     Dates: end: 20101020
  2. ETOPOSIDE [Suspect]
     Dosage: 516 MG
     Dates: end: 20101022

REACTIONS (2)
  - PULMONARY OEDEMA [None]
  - RESPIRATORY DISTRESS [None]
